FAERS Safety Report 22092676 (Version 1)
Quarter: 2023Q1

REPORT INFORMATION
  Report Type: Spontaneous
  Country: GB (occurrence: GB)
  Receive Date: 20230314
  Receipt Date: 20230314
  Transmission Date: 20230417
  Serious: Yes (Other)
  Sender: FDA-Public Use
  Company Number: GB-MHRA-MED-202303081953161320-PRDBM

PATIENT
  Age: 33 Year
  Sex: Male
  Weight: 79 kg

DRUGS (1)
  1. CIPROFLOXACIN [Suspect]
     Active Substance: CIPROFLOXACIN
     Indication: Urinary tract infection
     Dosage: 500MG TWICE DAILY; ;
     Dates: start: 20230216, end: 20230217

REACTIONS (4)
  - Neuralgia [Recovering/Resolving]
  - Paraesthesia [Recovering/Resolving]
  - Tendonitis [Not Recovered/Not Resolved]
  - Medication error [Unknown]

NARRATIVE: CASE EVENT DATE: 20230217
